FAERS Safety Report 6551178-5 (Version None)
Quarter: 2010Q1

REPORT INFORMATION
  Report Type: 
  Country: None (occurrence: None)
  Receive Date: 20100121
  Receipt Date: 20100111
  Transmission Date: 20100710
  Serious: Yes (Hospitalization)
  Sender: FDA-Public Use
  Company Number: 2009029838

PATIENT
  Age: 69 Year
  Sex: Male

DRUGS (1)
  1. TREANDA [Suspect]
     Indication: CHRONIC LYMPHOCYTIC LEUKAEMIA
     Dosage: (120 MG/M2, DAY 1 + 2 OF CYCLE 1-3 + DAY 1 OF 4+5), INTRAVENOUS
     Route: 042

REACTIONS (4)
  - CHILLS [None]
  - NEUROPATHY PERIPHERAL [None]
  - RASH [None]
  - SENSORIMOTOR DISORDER [None]
